FAERS Safety Report 20310064 (Version 1)
Quarter: 2022Q1

REPORT INFORMATION
  Report Type: Spontaneous
  Country: CN (occurrence: CN)
  Receive Date: 20220107
  Receipt Date: 20220107
  Transmission Date: 20220423
  Serious: Yes (Other)
  Sender: FDA-Public Use
  Company Number: CN-GLAXOSMITHKLINE-CNCH2022APC000741

PATIENT
  Age: 61 Year
  Sex: Male
  Weight: 50.5 kg

DRUGS (3)
  1. LORATADINE [Suspect]
     Active Substance: LORATADINE
     Indication: Rash
     Dosage: 10 MG
     Route: 048
  2. ZINACEF [Suspect]
     Active Substance: CEFUROXIME SODIUM
     Indication: Prophylaxis
     Dosage: 0.75 G, BID
     Route: 041
     Dates: start: 20211224, end: 20211229
  3. RELINQING KELI [Concomitant]
     Indication: Dysuria
     Dosage: UNK, TID (1 PACK TID)
     Route: 048
     Dates: start: 20211225, end: 20211226

REACTIONS (8)
  - Laryngeal oedema [Unknown]
  - Vocal cord disorder [Unknown]
  - Rash [Recovering/Resolving]
  - Cough [Unknown]
  - Oropharyngeal pain [Unknown]
  - Productive cough [Unknown]
  - Off label use [Unknown]
  - Therapeutic product effect incomplete [Unknown]

NARRATIVE: CASE EVENT DATE: 20211229
